FAERS Safety Report 20515086 (Version 1)
Quarter: 2022Q1

REPORT INFORMATION
  Report Type: Spontaneous
  Country: US (occurrence: US)
  Receive Date: 20220224
  Receipt Date: 20220224
  Transmission Date: 20220423
  Serious: Yes (Other)
  Sender: FDA-Public Use
  Company Number: US-TEVA-2022-US-2009383

PATIENT
  Age: 69 Year
  Sex: Male

DRUGS (3)
  1. PREDNISONE [Suspect]
     Active Substance: PREDNISONE
     Indication: Cystoid macular oedema
     Dosage: 0-5MG
     Route: 048
  2. BEVACIZUMAB [Suspect]
     Active Substance: BEVACIZUMAB
     Indication: Cystoid macular oedema
     Route: 050
  3. PEGINTERFERON ALFA-2A [Suspect]
     Active Substance: PEGINTERFERON ALFA-2A
     Indication: Cystoid macular oedema
     Dosage: 60 MCG ONCE IN 2 WEEKS
     Route: 058

REACTIONS (4)
  - Influenza like illness [Unknown]
  - Thrombocytopenia [Recovered/Resolved]
  - Neutropenia [Unknown]
  - Treatment failure [Unknown]
